FAERS Safety Report 5263329-3 (Version None)
Quarter: 2007Q1

REPORT INFORMATION
  Report Type: 
  Country: None (occurrence: None)
  Receive Date: 20061218
  Receipt Date: 20060929
  Transmission Date: 20070707
  Serious: No
  Sender: FDA-Public Use
  Company Number: US200609003387

PATIENT
  Age: 65 Year
  Sex: Male

DRUGS (8)
  1. CIALIS [Suspect]
     Dosage: 20 MG
     Dates: start: 20060831
  2. NOVOLOG [Concomitant]
  3. LEVOXYL [Concomitant]
  4. PRAVACHOL [Concomitant]
  5. ASPIRIN [Concomitant]
  6. ALTACE [Concomitant]
  7. ZETIA [Concomitant]
  8. MULTIPLE VITAMINS (ASCORBIC ACID, ERGOCALCIFEROL, FOLIC ACID, RETINOL, [Concomitant]

REACTIONS (8)
  - BACK PAIN [None]
  - BLOOD GLUCOSE DECREASED [None]
  - BLOOD GLUCOSE INCREASED [None]
  - FLUSHING [None]
  - HEADACHE [None]
  - MUSCLE SPASMS [None]
  - NASAL CONGESTION [None]
  - THERAPEUTIC RESPONSE DECREASED [None]
